FAERS Safety Report 6152494-1 (Version None)
Quarter: 2009Q2

REPORT INFORMATION
  Report Type: 
  Country: None (occurrence: None)
  Receive Date: 20090413
  Receipt Date: 20090403
  Transmission Date: 20091009
  Serious: Yes (Other)
  Sender: FDA-Public Use
  Company Number: PHHY2009CA05435

PATIENT
  Sex: Female

DRUGS (2)
  1. ESTRADERM [Suspect]
     Indication: HORMONE REPLACEMENT THERAPY
     Dosage: 50
     Route: 062
     Dates: start: 20050907, end: 20090128
  2. ESTRADERM [Suspect]
     Indication: MENOPAUSAL SYMPTOMS
     Dosage: 100
     Route: 062
     Dates: start: 20060701

REACTIONS (2)
  - DRUG INEFFECTIVE [None]
  - MENOPAUSAL SYMPTOMS [None]
